FAERS Safety Report 26091970 (Version 1)
Quarter: 2025Q4

REPORT INFORMATION
  Report Type: Spontaneous
  Country: US (occurrence: None)
  Receive Date: 20251126
  Receipt Date: 20251126
  Transmission Date: 20260117
  Serious: No
  Sender: AMERICAN REGENT
  Company Number: US-AMERICAN REGENT INC-2025001987

PATIENT

DRUGS (1)
  1. VENOFER [Suspect]
     Active Substance: IRON SUCROSE
     Indication: Product used for unknown indication
     Dosage: 150 MILLIGRAM (I?VE HAD TWO OR THREE [SESSIONS] IN FOUR TO FIVE WEEKS)
     Route: 065

REACTIONS (2)
  - Abdominal distension [Unknown]
  - Product use issue [Unknown]
